FAERS Safety Report 4850976-3 (Version None)
Quarter: 2005Q4

REPORT INFORMATION
  Report Type: 
  Country: None (occurrence: None)
  Receive Date: 20051130
  Receipt Date: 20051025
  Transmission Date: 20060501
  Serious: No
  Sender: FDA-Public Use
  Company Number: FABR-11290

PATIENT
  Age: 46 Year
  Sex: Male
  Weight: 63.05 kg

DRUGS (2)
  1. FABRAZYME [Suspect]
     Indication: FABRY'S DISEASE
     Dosage: 65 MG Q2WKS IV
     Route: 042
  2. FABRAZYME [Suspect]

REACTIONS (1)
  - INFLUENZA [None]
